FAERS Safety Report 7131569 (Version 2)
Quarter: 2012Q4

REPORT INFORMATION
  Report Type: 
  Country: US (occurrence: US)
  Receive Date: 20090925
  Receipt Date: 20121009
  Transmission Date: 20130627
  Serious: Yes (Death, Hospitalization)
  Sender: FDA-Public Use
  Company Number: PHHO2009US11704

PATIENT
  Age: 71 Year
  Sex: Male
  Weight: 114 kg

DRUGS (11)
  1. STI571 [Suspect]
     Indication: NON-SMALL CELL LUNG CANCER
     Dosage: 500 mg, UNK
     Route: 048
     Dates: start: 20090707, end: 20090710
  2. STI571 [Suspect]
     Dosage: 500 mg, UNK
     Route: 048
     Dates: start: 20090714, end: 20090717
  3. STI571 [Suspect]
     Dosage: 500 mg, UNK
     Route: 048
     Dates: start: 20090721, end: 20090724
  4. STI571 [Suspect]
     Dosage: 500 mg, UNK
     Route: 048
     Dates: start: 20090805, end: 20090807
  5. STI571 [Suspect]
     Dosage: 500 mg, UNK
     Route: 048
     Dates: start: 20090811, end: 20090814
  6. STI571 [Suspect]
     Dosage: 500 mg, UNK
     Dates: start: 20090818
  7. PACLITAXEL [Suspect]
     Dosage: UNK
     Dates: start: 20090707
  8. ATENOLOL [Concomitant]
     Indication: HYPERTENSION
     Dosage: UNK
  9. SYNTHROID [Concomitant]
     Indication: HYPOTHYROIDISM
     Dosage: UNK
  10. METFORMIN [Concomitant]
     Indication: DIABETES MELLITUS
     Dosage: UNK
  11. LOVASTATIN [Concomitant]
     Indication: HYPERTENSION
     Dosage: UNK

REACTIONS (9)
  - Pneumonitis [Fatal]
  - Staphylococcal infection [Fatal]
  - Dyspnoea [Fatal]
  - Oxygen saturation decreased [Fatal]
  - Hypoxia [Fatal]
  - Respiratory distress [Fatal]
  - Atrial fibrillation [Fatal]
  - Pyrexia [Fatal]
  - Weaning failure [Fatal]
